FAERS Safety Report 4509907-8 (Version None)
Quarter: 2004Q4

REPORT INFORMATION
  Report Type: 
  Country: None (occurrence: None)
  Receive Date: 20041124
  Receipt Date: 20041110
  Transmission Date: 20050328
  Serious: Yes (Hospitalization, Other)
  Sender: FDA-Public Use
  Company Number: HQWYE393511NOV04

PATIENT
  Age: 72 Year
  Sex: Female
  Weight: 65 kg

DRUGS (2)
  1. ENBREL [Suspect]
     Indication: RHEUMATOID ARTHRITIS
     Route: 058
     Dates: start: 20011101, end: 20040801
  2. METHOTREXATE [Concomitant]
     Dosage: UNKNOWN
     Dates: start: 19920101

REACTIONS (11)
  - DEMENTIA [None]
  - HYPERTHYROIDISM [None]
  - HYPOTHYROIDISM [None]
  - INFECTED SKIN ULCER [None]
  - MYOFASCIAL PAIN SYNDROME [None]
  - OSTEOPOROSIS [None]
  - OSTEOPOROTIC FRACTURE [None]
  - PAIN [None]
  - PUBIC RAMI FRACTURE [None]
  - SKIN ULCER [None]
  - THORACIC VERTEBRAL FRACTURE [None]
